FAERS Safety Report 5765491-2 (Version None)
Quarter: 2008Q2

REPORT INFORMATION
  Report Type: 
  Country: None (occurrence: None)
  Receive Date: 20080611
  Receipt Date: 20080609
  Transmission Date: 20081010
  Serious: Yes (Hospitalization)
  Sender: FDA-Public Use
  Company Number: B0523301A

PATIENT
  Age: 78 Year
  Sex: Female
  Weight: 60 kg

DRUGS (8)
  1. ARIXTRA [Suspect]
     Dosage: 7.5MG PER DAY
     Route: 058
     Dates: start: 20080416, end: 20080515
  2. KARDEGIC [Suspect]
     Indication: PROPHYLAXIS
     Dosage: 160MG PER DAY
     Route: 048
     Dates: start: 20080416
  3. DANCOR [Concomitant]
     Route: 065
  4. LYRICA [Concomitant]
     Route: 065
  5. TAHOR [Concomitant]
     Route: 065
  6. PANTOPRAZOLE SODIUM [Concomitant]
     Route: 065
  7. MAGNE B6 [Concomitant]
     Route: 065
  8. INSULINE [Concomitant]
     Route: 065

REACTIONS (5)
  - HAEMATOMA [None]
  - HAEMOGLOBIN DECREASED [None]
  - INCORRECT DOSE ADMINISTERED [None]
  - INTENTIONAL DRUG MISUSE [None]
  - SKIN NECROSIS [None]
